FAERS Safety Report 23187756 (Version 1)
Quarter: 2023Q4

REPORT INFORMATION
  Report Type: Spontaneous
  Country: US (occurrence: US)
  Receive Date: 20231115
  Receipt Date: 20231115
  Transmission Date: 20240110
  Serious: No
  Sender: FDA-Public Use
  Company Number: US-NOVOPROD-1056257

PATIENT
  Sex: Male

DRUGS (2)
  1. NOVOLOG [Suspect]
     Active Substance: INSULIN ASPART
     Indication: Diabetes mellitus
     Dosage: 70/30
     Route: 058
  2. HUMIRA [Suspect]
     Active Substance: ADALIMUMAB
     Indication: Crohn^s disease
     Dosage: UNK
     Route: 058
     Dates: start: 20180215

REACTIONS (6)
  - Malaise [Recovered/Resolved]
  - Limb discomfort [Unknown]
  - Drug intolerance [Unknown]
  - Visual impairment [Unknown]
  - Skin exfoliation [Not Recovered/Not Resolved]
  - Blood glucose decreased [Recovered/Resolved]
